FAERS Safety Report 5444178-X (Version None)
Quarter: 2007Q3

REPORT INFORMATION
  Report Type: 
  Country: None (occurrence: None)
  Receive Date: 20070904
  Receipt Date: 20070904
  Transmission Date: 20080115
  Serious: Yes (Other)
  Sender: FDA-Public Use
  Company Number: None

PATIENT
  Sex: Male
  Weight: 102.5129 kg

DRUGS (1)
  1. MICARDIS HCT [Suspect]
     Indication: HYPERTENSION
     Dosage: 80MG/12.5MG 1 DAILY
     Dates: start: 20070125, end: 20070520

REACTIONS (4)
  - GLOSSODYNIA [None]
  - INFLUENZA LIKE ILLNESS [None]
  - ORAL PAIN [None]
  - TOOTHACHE [None]
